FAERS Safety Report 24611285 (Version 2)
Quarter: 2024Q4

REPORT INFORMATION
  Report Type: Spontaneous
  Country: BR (occurrence: BR)
  Receive Date: 20241113
  Receipt Date: 20241125
  Transmission Date: 20250115
  Serious: Yes (Hospitalization, Other)
  Sender: NOVO NORDISK
  Company Number: BR-NOVOPROD-1314326

PATIENT
  Age: 37 Year
  Sex: Female

DRUGS (1)
  1. OZEMPIC [Suspect]
     Active Substance: SEMAGLUTIDE
     Indication: Hypertension
     Dosage: UNK
     Dates: start: 2024

REACTIONS (10)
  - Malaise [Recovered/Resolved]
  - Intestinal ischaemia [Recovered/Resolved]
  - Near death experience [Unknown]
  - Counterfeit product administered [Unknown]
  - Abdominal pain upper [Recovered/Resolved]
  - Abdominal distension [Recovered/Resolved]
  - Bedridden [Recovered/Resolved]
  - Presyncope [Recovered/Resolved]
  - Gait inability [Recovered/Resolved]
  - Off label use [Recovered/Resolved]

NARRATIVE: CASE EVENT DATE: 20240101
